FAERS Safety Report 8551817-3 (Version None)
Quarter: 2012Q3

REPORT INFORMATION
  Report Type: 
  Country: None (occurrence: None)
  Receive Date: 20120730
  Receipt Date: 20120719
  Transmission Date: 20120928
  Serious: Yes (Other)
  Sender: FDA-Public Use
  Company Number: CN-BAXTER-2012BAX012444

PATIENT
  Sex: Female
  Weight: 40 kg

DRUGS (2)
  1. SODIUM CHLORIDE INJ [Suspect]
  2. SODIUM CHLORIDE INJ [Suspect]
     Indication: ENTERITIS
     Route: 042
     Dates: start: 20110709, end: 20110709

REACTIONS (2)
  - HYPERHIDROSIS [None]
  - HYPOTENSION [None]
